FAERS Safety Report 22159965 (Version 1)
Quarter: 2023Q1

REPORT INFORMATION
  Report Type: Spontaneous
  Country: US (occurrence: US)
  Receive Date: 20230331
  Receipt Date: 20230331
  Transmission Date: 20230418
  Serious: Yes (Other)
  Sender: FDA-Public Use
  Company Number: US-002147023-NVSC2023US068744

PATIENT
  Sex: Female

DRUGS (1)
  1. KESIMPTA [Suspect]
     Active Substance: OFATUMUMAB
     Indication: Product used for unknown indication
     Dosage: 20 MG, QMO
     Route: 065

REACTIONS (6)
  - Glaucoma [Unknown]
  - Visual impairment [Unknown]
  - Memory impairment [Unknown]
  - Device defective [Unknown]
  - Device delivery system issue [Unknown]
  - Wrong technique in device usage process [Unknown]
